FAERS Safety Report 9271761 (Version 1)
Quarter: 2013Q2

REPORT INFORMATION
  Report Type: Spontaneous
  Country: BR (occurrence: BR)
  Receive Date: 20130506
  Receipt Date: 20130506
  Transmission Date: 20140414
  Serious: Yes (Other)
  Sender: FDA-Public Use
  Company Number: BR-BAYER-2013-052582

PATIENT
  Age: 61 Year
  Sex: Female
  Weight: 64.85 kg

DRUGS (4)
  1. FLANAX [Suspect]
     Indication: ARTHRALGIA
     Dosage: 1 DF, QD
     Route: 048
     Dates: start: 20130420
  2. PARACETAMOL [Concomitant]
     Dosage: 1 DF, QID
     Route: 048
     Dates: start: 20130417
  3. NOVOLIN [INSULIN] [Concomitant]
     Indication: DIABETES MELLITUS
     Dosage: 15 U, BID
     Route: 058
  4. METFORMIN [Concomitant]
     Indication: DIABETES MELLITUS
     Dosage: 850 MG, QD
     Route: 048

REACTIONS (1)
  - Dysuria [Not Recovered/Not Resolved]
